FAERS Safety Report 23724088 (Version 3)
Quarter: 2024Q2

REPORT INFORMATION
  Report Type: Spontaneous
  Country: JP (occurrence: None)
  Receive Date: 20240409
  Receipt Date: 20240529
  Transmission Date: 20240715
  Serious: Yes (Death, Other)
  Sender: FDA-Public Use
  Company Number: 2024A083526

PATIENT
  Age: 81 Year
  Weight: 52 kg

DRUGS (10)
  1. ONDEXXYA [Suspect]
     Active Substance: ANDEXANET ALFA
     Indication: Cerebral haemorrhage
     Dosage: DOSE UNKNOWN
     Route: 042
     Dates: start: 20240406, end: 20240406
  2. ONDEXXYA [Suspect]
     Active Substance: ANDEXANET ALFA
     Indication: Thalamus haemorrhage
     Dosage: DOSE UNKNOWN
     Route: 042
     Dates: start: 20240406, end: 20240406
  3. CRESTOR [Concomitant]
     Active Substance: ROSUVASTATIN CALCIUM
     Indication: Dyslipidaemia
     Dosage: DOSE UNKNOWN
     Route: 048
  4. BISOPROLOL FUMARATE [Concomitant]
     Active Substance: BISOPROLOL FUMARATE
     Indication: Atrial fibrillation
     Dosage: DOSE UNKNOWN
     Route: 048
  5. LANSOPRAZOLE [Concomitant]
     Active Substance: LANSOPRAZOLE
     Dosage: DOSE UNKNOWN
     Route: 048
  6. ISOSORBIDE MONONITRATE [Concomitant]
     Active Substance: ISOSORBIDE MONONITRATE
     Dosage: DOSE UNKNOWN
     Route: 048
  7. TEGRETOL [Concomitant]
     Active Substance: CARBAMAZEPINE
     Dosage: DOSE UNKNOWN
     Route: 048
  8. VILDAGLIPTIN [Concomitant]
     Active Substance: VILDAGLIPTIN
     Dosage: DOSE UNKNOWN
     Route: 048
  9. ELIQUIS [Concomitant]
     Active Substance: APIXABAN
     Indication: Atrial fibrillation
     Dosage: DOSE UNKNOWN
     Route: 048
  10. DIPHENIDOL HYDROCHLORIDE [Concomitant]
     Active Substance: DIPHENIDOL HYDROCHLORIDE
     Dosage: DOSE UNKNOWN
     Route: 048

REACTIONS (3)
  - Thrombosis [Fatal]
  - Myocardial infarction [Fatal]
  - Multiple organ dysfunction syndrome [Unknown]

NARRATIVE: CASE EVENT DATE: 20240406
